FAERS Safety Report 7556579-4 (Version None)
Quarter: 2011Q2

REPORT INFORMATION
  Report Type: 
  Country: None (occurrence: None)
  Receive Date: 20110620
  Receipt Date: 20110608
  Transmission Date: 20111010
  Serious: Yes (Hospitalization, Other)
  Sender: FDA-Public Use
  Company Number: US-ELI_LILLY_AND_COMPANY-US201104004245

PATIENT
  Sex: Female
  Weight: 60 kg

DRUGS (9)
  1. COUMADIN [Concomitant]
     Dosage: UNK
     Dates: start: 20110419
  2. FORTEO [Suspect]
     Dosage: 20 UG, QD
     Route: 065
     Dates: start: 20110330
  3. PREMPRO [Concomitant]
  4. ULTRAM [Concomitant]
     Dosage: UNK
     Dates: start: 20080718
  5. DIOVAN [Concomitant]
     Dosage: UNK
     Dates: start: 20101103
  6. VITAMIN D [Concomitant]
     Dosage: UNK
     Dates: start: 20091007
  7. EFFEXOR [Concomitant]
     Dosage: UNK
     Dates: start: 20110505
  8. NITROGLYCERIN [Concomitant]
     Dosage: UNK
     Dates: start: 20110505
  9. REQUIP [Concomitant]
     Dosage: UNK
     Dates: start: 20110126

REACTIONS (1)
  - PULMONARY EMBOLISM [None]
